FAERS Safety Report 5693098-4 (Version None)
Quarter: 2008Q2

REPORT INFORMATION
  Report Type: 
  Country: None (occurrence: None)
  Receive Date: 20080402
  Receipt Date: 20080402
  Transmission Date: 20081010
  Serious: Yes (Other)
  Sender: FDA-Public Use
  Company Number: None

PATIENT
  Age: 78 Year
  Sex: Female
  Weight: 104.3273 kg

DRUGS (1)
  1. CADUET [Suspect]
     Indication: CARDIAC OPERATION
     Dosage: 10/20MG DAILY - ONCE A DAY
     Dates: start: 20070101, end: 20071001

REACTIONS (3)
  - BACK PAIN [None]
  - FALL [None]
  - PAIN [None]
